FAERS Safety Report 7300097-5 (Version None)
Quarter: 2011Q1

REPORT INFORMATION
  Report Type: 
  Country: None (occurrence: None)
  Receive Date: 20110217
  Receipt Date: 20110202
  Transmission Date: 20110831
  Serious: Yes (Hospitalization, Other)
  Sender: FDA-Public Use
  Company Number: CH-BAYER-2011-010287

PATIENT
  Age: 73 Year
  Sex: Male

DRUGS (10)
  1. SUTENT [Concomitant]
     Dosage: DAILY DOSE 37.5 MG
     Route: 048
     Dates: start: 20100113
  2. SUTENT [Concomitant]
     Dosage: DAILY DOSE 25 MG
     Route: 048
     Dates: start: 20100212
  3. SUTENT [Concomitant]
     Dosage: UNK
     Route: 048
     Dates: end: 20100519
  4. RENITEN MITE [Concomitant]
     Dosage: UNK UNK, QD
     Route: 048
     Dates: start: 20091224
  5. ASPIRIN [Suspect]
     Dosage: DAILY DOSE 300 MG
     Route: 048
     Dates: end: 20100519
  6. PANTOPRAZOLE [Concomitant]
     Dosage: DAILY DOSE 40 MG
     Route: 048
  7. TRASICOR [Concomitant]
     Dosage: DAILY DOSE 40 MG
     Route: 048
  8. SUTENT [Concomitant]
     Indication: METASTATIC RENAL CELL CARCINOMA
     Dosage: DAILY DOSE 50 MG
     Route: 048
  9. EVEROLIMUS [Concomitant]
     Dosage: UNK
     Dates: start: 20100701, end: 20101001
  10. UNCODEABLE ^UNCLASSIFIABLE^ [Concomitant]
     Dosage: UNK
     Dates: start: 20101101

REACTIONS (2)
  - METASTATIC RENAL CELL CARCINOMA [None]
  - CEREBRAL HAEMORRHAGE [None]
